FAERS Safety Report 4587113-9 (Version None)
Quarter: 2005Q1

REPORT INFORMATION
  Report Type: 
  Country: None (occurrence: None)
  Receive Date: 20050218
  Receipt Date: 20050209
  Transmission Date: 20050727
  Serious: Yes (Other)
  Sender: FDA-Public Use
  Company Number: PHBS2005BR02153

PATIENT
  Sex: Male

DRUGS (3)
  1. TEGRETOL [Suspect]
     Dosage: TWICE OR THREE TIMES/DAY
     Route: 048
  2. FRISIUM [Concomitant]
     Route: 048
  3. HIDANTAL [Concomitant]
     Route: 048

REACTIONS (1)
  - DRUG ABUSER [None]
